FAERS Safety Report 7314956-0 (Version None)
Quarter: 2011Q1

REPORT INFORMATION
  Report Type: 
  Country: None (occurrence: None)
  Receive Date: 20110225
  Receipt Date: 20100318
  Transmission Date: 20110831
  Serious: No
  Sender: FDA-Public Use
  Company Number: US-MYLANLABS-2010S1002649

PATIENT
  Age: 32 Year
  Sex: Male

DRUGS (4)
  1. CLARAVIS [Suspect]
     Indication: ACNE CYSTIC
     Route: 048
     Dates: end: 20100209
  2. PSEUDOEPHEDRINE HCL [Concomitant]
  3. TRIAMCINOLONE [Concomitant]
  4. AMNESTEEM [Suspect]
     Indication: ACNE CYSTIC
     Route: 048
     Dates: start: 20091102

REACTIONS (2)
  - ABDOMINAL PAIN [None]
  - LYMPHADENITIS [None]
